FAERS Safety Report 9525986 (Version 1)
Quarter: 2013Q3

REPORT INFORMATION
  Report Type: Spontaneous
  Country: ES (occurrence: ES)
  Receive Date: 20130916
  Receipt Date: 20130916
  Transmission Date: 20140515
  Serious: Yes (Death)
  Sender: FDA-Public Use
  Company Number: ES-SANOFI-AVENTIS-2013SA090463

PATIENT
  Age: 80 Year
  Sex: Female

DRUGS (17)
  1. DOCETAXEL [Suspect]
     Indication: HER-2 POSITIVE BREAST CANCER
     Dosage: DOSE LEVEL : 75 MG/M2
     Route: 042
     Dates: start: 20100914
  2. DOCETAXEL [Suspect]
     Indication: HER-2 POSITIVE BREAST CANCER
     Dosage: DOSE LEVEL : 75 MG/M2
     Route: 042
     Dates: start: 20100914
  3. DOCETAXEL [Suspect]
     Indication: HER-2 POSITIVE BREAST CANCER
     Dosage: DOSE LEVEL : 60 MG/M2
     Route: 042
     Dates: end: 20101228
  4. DOCETAXEL [Suspect]
     Indication: HER-2 POSITIVE BREAST CANCER
     Dosage: DOSE LEVEL : 60 MG/M2
     Route: 042
     Dates: end: 20101228
  5. TRASTUZUMAB [Concomitant]
     Indication: HER-2 POSITIVE BREAST CANCER
     Route: 042
     Dates: start: 20100914
  6. TRASTUZUMAB [Concomitant]
     Indication: HER-2 POSITIVE BREAST CANCER
     Dosage: FORM: VIAL
     Route: 042
     Dates: start: 20101005, end: 20101228
  7. BEVACIZUMAB [Concomitant]
     Indication: HER-2 POSITIVE BREAST CANCER
     Dosage: 1050 MG, FORM: VIAL
     Route: 042
     Dates: start: 20100914, end: 20101228
  8. CARBOPLATIN [Concomitant]
     Indication: HER-2 POSITIVE BREAST CANCER
     Dosage: FORM: VIAL
     Route: 042
     Dates: start: 20100914
  9. CARBOPLATIN [Concomitant]
     Indication: HER-2 POSITIVE BREAST CANCER
     Dosage: FORM: VIAL
     Route: 042
     Dates: start: 20100914
  10. CARBOPLATIN [Concomitant]
     Indication: HER-2 POSITIVE BREAST CANCER
     Dosage: FORM: VIAL
     Route: 042
     Dates: end: 20101228
  11. CARBOPLATIN [Concomitant]
     Indication: HER-2 POSITIVE BREAST CANCER
     Dosage: FORM: VIAL
     Route: 042
     Dates: end: 20101228
  12. SUMIAL [Concomitant]
  13. MYSOLINE [Concomitant]
  14. COZAAR [Concomitant]
  15. DISALUNIL [Concomitant]
  16. SOMATOSTATIN ACETATE [Concomitant]
  17. TRIFLUSAL [Concomitant]
     Indication: PROPHYLAXIS

REACTIONS (1)
  - Interstitial lung disease [Fatal]
